FAERS Safety Report 12037848 (Version 1)
Quarter: 2016Q1

REPORT INFORMATION
  Report Type: Report from Study
  Country: US (occurrence: US)
  Receive Date: 20160208
  Receipt Date: 20160208
  Transmission Date: 20160526
  Serious: No
  Sender: FDA-Public Use
  Company Number: US-ABBVIE-15K-163-1528357-00

PATIENT
  Age: 38 Year
  Sex: Female

DRUGS (1)
  1. HUMIRA [Suspect]
     Active Substance: ADALIMUMAB
     Indication: COLITIS ULCERATIVE
     Dosage: DAY 1
     Route: 058
     Dates: start: 20151217, end: 20151217

REACTIONS (12)
  - Fear [Unknown]
  - Decreased appetite [Unknown]
  - Weight decreased [Unknown]
  - Rectal haemorrhage [Unknown]
  - Insomnia [Unknown]
  - Diarrhoea [Unknown]
  - Impaired work ability [Unknown]
  - Depressed mood [Unknown]
  - Anxiety [Unknown]
  - Abdominal pain [Unknown]
  - Malaise [Unknown]
  - Nausea [Unknown]

NARRATIVE: CASE EVENT DATE: 201512
